FAERS Safety Report 9059824 (Version 1)
Quarter: 2013Q1

REPORT INFORMATION
  Report Type: Spontaneous
  Country: US (occurrence: None)
  Receive Date: 20130118
  Receipt Date: 20130118
  Transmission Date: 20140127
  Serious: Yes (Death, Other)
  Sender: FDA-Public Use
  Company Number: AUR-APL-2013-00162

PATIENT
  Age: 15 Year
  Sex: Female

DRUGS (7)
  1. SERTRALINE (SERTRALINE) (SERTRALINE) [Suspect]
     Indication: PRODUCT USED FOR UNKNOWN INDICATION
  2. ONDANSETRON [Suspect]
  3. METHADONE [Suspect]
  4. BACLOFEN [Suspect]
  5. PERCOCET [OXYCODONE HYDROCHLORIDE,PARACETAMOL] [Suspect]
  6. LEVOTHYROXINE [Suspect]
  7. IBUPROFEN (IBUPROFEN) [Suspect]

REACTIONS (4)
  - Respiratory arrest [None]
  - Cardiac arrest [None]
  - Completed suicide [None]
  - Toxicity to various agents [None]
